FAERS Safety Report 6417720-X (Version None)
Quarter: 2009Q4

REPORT INFORMATION
  Report Type: 
  Country: None (occurrence: None)
  Receive Date: 20091026
  Receipt Date: 20091013
  Transmission Date: 20100525
  Serious: Yes (Disabling, Other)
  Sender: FDA-Public Use
  Company Number: ADR39822009

PATIENT
  Age: 85 Year
  Sex: Male

DRUGS (11)
  1. SIMVASTATIN [Suspect]
     Indication: ATRIAL FIBRILLATION
     Dosage: 40 MG ORAL
     Route: 048
     Dates: end: 20081101
  2. VERAPAMIL [Concomitant]
  3. ASPIRIN [Concomitant]
  4. BRIMONIDINE [Concomitant]
  5. CO-CODAMOL [Concomitant]
  6. FUROSEMIDE [Concomitant]
  7. LISINOPRIL [Concomitant]
  8. PANADEINE (2MG) [Concomitant]
  9. QVAR 40 [Concomitant]
  10. ALBUTEROL [Concomitant]
  11. ALBUTEROL SULFATE AUTOHALER [Concomitant]

REACTIONS (3)
  - BLOOD CREATINE PHOSPHOKINASE INCREASED [None]
  - HYPOKINESIA [None]
  - MYOSITIS [None]
